FAERS Safety Report 12088047 (Version 1)
Quarter: 2016Q1

REPORT INFORMATION
  Report Type: Spontaneous
  Country: US (occurrence: US)
  Receive Date: 20160217
  Receipt Date: 20160217
  Transmission Date: 20160526
  Serious: Yes (Hospitalization)
  Sender: FDA-Public Use
  Company Number: US-CITRON PHARMA LLC-B16-0003-ADE

PATIENT
  Age: 17 Year
  Sex: Male

DRUGS (4)
  1. FLUDROCORTISONE ACETATE. [Suspect]
     Active Substance: FLUDROCORTISONE ACETATE
     Indication: ADRENOCORTICAL INSUFFICIENCY ACUTE
     Dosage: 0.1 MG, QD
     Route: 065
  2. HYDROCORTISONE. [Suspect]
     Active Substance: HYDROCORTISONE
     Dosage: 18 MG/M2, QD
  3. HYDROCORTISONE. [Suspect]
     Active Substance: HYDROCORTISONE
     Indication: ADRENOCORTICAL INSUFFICIENCY ACUTE
     Dosage: 10 MG/M2, QD
  4. HYDROCORTISONE. [Suspect]
     Active Substance: HYDROCORTISONE
     Dosage: 15 MG/M2, QD

REACTIONS (8)
  - Adrenocortical insufficiency acute [Not Recovered/Not Resolved]
  - Weight decreased [Unknown]
  - Dehydration [Unknown]
  - Fatigue [Recovered/Resolved]
  - Von Hippel-Lindau disease [Unknown]
  - Gastroenteritis [Recovered/Resolved]
  - Intercepted medication error [Unknown]
  - Hyponatraemia [Unknown]
